FAERS Safety Report 9552331 (Version 2)
Quarter: 2013Q3

REPORT INFORMATION
  Report Type: Spontaneous
  Country: FR (occurrence: FR)
  Receive Date: 20130925
  Receipt Date: 20130925
  Transmission Date: 20140515
  Serious: Yes (Other)
  Sender: FDA-Public Use
  Company Number: FR-TAKEDA-LTI2011A00170

PATIENT
  Sex: 0

DRUGS (8)
  1. COMPETACT [Suspect]
     Indication: TYPE 2 DIABETES MELLITUS
     Dosage: 2 UNK, BID
     Route: 048
     Dates: start: 20070204, end: 20110327
  2. SOTALEX [Concomitant]
  3. AMLOR [Concomitant]
  4. FORTAAR [Concomitant]
  5. LIPANOR [Concomitant]
  6. METFORMIN [Concomitant]
  7. VELMETIA [Concomitant]
  8. AMAREL [Concomitant]

REACTIONS (2)
  - Bladder transitional cell carcinoma [Recovered/Resolved]
  - Albuminuria [Unknown]
